FAERS Safety Report 4623876-1 (Version None)
Quarter: 2005Q1

REPORT INFORMATION
  Report Type: 
  Country: None (occurrence: None)
  Receive Date: 20050330
  Receipt Date: 20050330
  Transmission Date: 20050727
  Serious: Yes (Death)
  Sender: FDA-Public Use
  Company Number: None

PATIENT
  Age: 78 Year
  Sex: Male

DRUGS (6)
  1. NEURONTIN [Suspect]
     Indication: NEUROPATHY
     Dosage: 1800MG DAILY, ORAL
     Route: 048
     Dates: start: 19990301, end: 20020301
  2. PLATAL [Concomitant]
  3. ACCUPRIL [Concomitant]
  4. PROZAC [Concomitant]
  5. IMDUR [Concomitant]
  6. LANOXIN [Concomitant]

REACTIONS (2)
  - COMPLETED SUICIDE [None]
  - GUN SHOT WOUND [None]
